FAERS Safety Report 6058333-1 (Version None)
Quarter: 2009Q1

REPORT INFORMATION
  Report Type: 
  Country: None (occurrence: None)
  Receive Date: 20090130
  Receipt Date: 20090116
  Transmission Date: 20090719
  Serious: Yes (Other)
  Sender: FDA-Public Use
  Company Number: PT-AMGEN-US329685

PATIENT
  Sex: Female
  Weight: 65 kg

DRUGS (1)
  1. ENBREL [Suspect]
     Indication: PSORIASIS
     Route: 058
     Dates: start: 20081117

REACTIONS (6)
  - COUGH [None]
  - INFLUENZA [None]
  - NASAL INFLAMMATION [None]
  - PRODUCTIVE COUGH [None]
  - PYREXIA [None]
  - TONGUE OEDEMA [None]
